FAERS Safety Report 7153642-7 (Version None)
Quarter: 2010Q4

REPORT INFORMATION
  Report Type: 
  Country: None (occurrence: None)
  Receive Date: 20101213
  Receipt Date: 20101209
  Transmission Date: 20110411
  Serious: Yes (Death)
  Sender: FDA-Public Use
  Company Number: CHNY2007GB02692

PATIENT
  Age: 19 Year
  Sex: Male

DRUGS (6)
  1. IBUPROFEN [Suspect]
     Dosage: UNK, UNK
  2. CHLORPHENIRAMINE MALEATE,PHENYLPROPANOLAMINE HYDROCHLORIDE [Suspect]
     Dosage: UNK, UNK
  3. CYCLOBENZAPRINE [Suspect]
     Dosage: UNK, UNK
  4. ERYTHROMYCIN [Suspect]
     Dosage: UNK, UNK
  5. PHENYTOIN [Suspect]
     Dosage: UNK, UNK
  6. LIDOCAINE [Suspect]
     Dosage: UNK, UNK

REACTIONS (23)
  - ACCELERATED IDIOVENTRICULAR RHYTHM [None]
  - ASPARTATE AMINOTRANSFERASE INCREASED [None]
  - BLOOD BICARBONATE DECREASED [None]
  - BLOOD LACTATE DEHYDROGENASE INCREASED [None]
  - BLOOD PH DECREASED [None]
  - COMA [None]
  - COMPLETED SUICIDE [None]
  - DRUG TOXICITY [None]
  - HAEMODYNAMIC INSTABILITY [None]
  - HYPOREFLEXIA [None]
  - HYPOTENSION [None]
  - LETHARGY [None]
  - METABOLIC ACIDOSIS [None]
  - OVERDOSE [None]
  - PCO2 INCREASED [None]
  - PO2 INCREASED [None]
  - PULSE ABSENT [None]
  - RESPIRATORY ACIDOSIS [None]
  - SINUS TACHYCARDIA [None]
  - STUPOR [None]
  - SUBCUTANEOUS EMPHYSEMA [None]
  - VENTRICULAR TACHYCARDIA [None]
  - VOMITING [None]
